FAERS Safety Report 6061701-5 (Version None)
Quarter: 2009Q1

REPORT INFORMATION
  Report Type: 
  Country: None (occurrence: None)
  Receive Date: 20090202
  Receipt Date: 20090121
  Transmission Date: 20090719
  Serious: Yes (Other)
  Sender: FDA-Public Use
  Company Number: GB-PFIZER INC-2009155663

PATIENT

DRUGS (3)
  1. LINEZOLID [Suspect]
     Indication: STAPHYLOCOCCAL INFECTION
     Route: 048
  2. VENLAFAXINE [Suspect]
     Indication: DEPRESSION
  3. RIFAMPICIN [Concomitant]

REACTIONS (4)
  - DISORIENTATION [None]
  - DRUG INTERACTION [None]
  - NERVOUS SYSTEM DISORDER [None]
  - SERUM SEROTONIN INCREASED [None]
